FAERS Safety Report 4625499-7 (Version None)
Quarter: 2005Q2

REPORT INFORMATION
  Report Type: 
  Country: None (occurrence: None)
  Receive Date: 20050401
  Receipt Date: 20050324
  Transmission Date: 20051028
  Serious: Yes (Hospitalization)
  Sender: FDA-Public Use
  Company Number: CA-ABBOTT-05P-028-0295517-00

PATIENT
  Sex: Male
  Weight: 74.002 kg

DRUGS (3)
  1. MAVIK [Suspect]
     Indication: HYPERTENSION
     Route: 048
  2. ACETYLSALICYLIC ACID SRT [Concomitant]
     Indication: ANTIPLATELET THERAPY
     Route: 048
     Dates: start: 20021028
  3. FLOMAX [Concomitant]
     Indication: PROSTATISM
     Route: 048
     Dates: start: 20021202, end: 20050228

REACTIONS (7)
  - ATRIAL FIBRILLATION [None]
  - CEREBRAL ATROPHY [None]
  - COMPUTERISED TOMOGRAM ABNORMAL [None]
  - ISCHAEMIA [None]
  - SYNCOPE [None]
  - VENTRICULAR EXTRASYSTOLES [None]
  - VISUAL ACUITY REDUCED [None]
